FAERS Safety Report 19622300 (Version 4)
Quarter: 2021Q3

REPORT INFORMATION
  Report Type: Spontaneous
  Country: US (occurrence: US)
  Receive Date: 20210728
  Receipt Date: 20210930
  Transmission Date: 20211014
  Serious: No
  Sender: FDA-Public Use
  Company Number: US-KARYOPHARM-2021KPT000951

PATIENT

DRUGS (5)
  1. ONDANSETRON [Concomitant]
     Active Substance: ONDANSETRON
  2. LOPERAMIDE [Concomitant]
     Active Substance: LOPERAMIDE
  3. XPOVIO [Suspect]
     Active Substance: SELINEXOR
     Indication: DIFFUSE LARGE B-CELL LYMPHOMA
     Dosage: 60 MG, 2X/WEEK
     Route: 048
     Dates: start: 20210712, end: 20210809
  4. ELIQUIS [Concomitant]
     Active Substance: APIXABAN
  5. GRANISETRON [Concomitant]
     Active Substance: GRANISETRON

REACTIONS (9)
  - Nausea [Unknown]
  - Ageusia [Unknown]
  - Decreased appetite [Unknown]
  - Somnolence [Unknown]
  - Platelet count decreased [Unknown]
  - Fatigue [Unknown]
  - Constipation [Unknown]
  - White blood cell count decreased [Unknown]
  - Vision blurred [Recovered/Resolved]

NARRATIVE: CASE EVENT DATE: 202107
